FAERS Safety Report 5238111-3 (Version None)
Quarter: 2007Q1

REPORT INFORMATION
  Report Type: 
  Country: None (occurrence: None)
  Receive Date: 20070215
  Receipt Date: 20070208
  Transmission Date: 20070707
  Serious: Yes (Other)
  Sender: FDA-Public Use
  Company Number: NL-JNJFOC-20070202034

PATIENT
  Sex: Male

DRUGS (2)
  1. DURAGESIC-100 [Suspect]
     Indication: ANALGESIC EFFECT
     Route: 062
  2. OXYCONTIN [Concomitant]
     Indication: HERNIA
     Route: 065

REACTIONS (2)
  - ARTHROPATHY [None]
  - MUSCULAR WEAKNESS [None]
